FAERS Safety Report 24058876 (Version 1)
Quarter: 2024Q3

REPORT INFORMATION
  Report Type: Spontaneous
  Country: JP (occurrence: JP)
  Receive Date: 20240708
  Receipt Date: 20240708
  Transmission Date: 20241016
  Serious: Yes (Life-Threatening, Other)
  Sender: SANDOZ
  Company Number: JP-SANDOZ INC.-SDZ2024JP062393

PATIENT
  Age: 9 Decade
  Sex: Male

DRUGS (1)
  1. XYLOCAINE [Suspect]
     Active Substance: LIDOCAINE HYDROCHLORIDE\LIDOCAINE HYDROCHLORIDE ANHYDROUS
     Indication: Anaesthesia procedure
     Dosage: 20 ML
     Route: 065

REACTIONS (1)
  - Shock [Recovering/Resolving]
